FAERS Safety Report 6229454-5 (Version None)
Quarter: 2009Q2

REPORT INFORMATION
  Report Type: 
  Country: None (occurrence: None)
  Receive Date: 20090615
  Receipt Date: 20090608
  Transmission Date: 20091009
  Serious: Yes (Hospitalization)
  Sender: FDA-Public Use
  Company Number: A0731305A

PATIENT
  Age: 48 Year
  Sex: Female
  Weight: 113.6 kg

DRUGS (9)
  1. AVANDIA [Suspect]
     Dosage: 4MG TWICE PER DAY
     Route: 048
     Dates: start: 19990101, end: 20070822
  2. GLUCOPHAGE [Concomitant]
     Dates: start: 20020101
  3. METFORMIN HYDROCHLORIDE [Concomitant]
     Dates: start: 19980101, end: 20080501
  4. INSULIN [Concomitant]
     Dates: start: 19980101, end: 20050101
  5. METOPROLOL SUCCINATE [Concomitant]
  6. LIPITOR [Concomitant]
  7. ZOCOR [Concomitant]
  8. ZOLOFT [Concomitant]
  9. REMERON [Concomitant]

REACTIONS (2)
  - CARDIAC FAILURE CONGESTIVE [None]
  - RENAL INJURY [None]
